FAERS Safety Report 24442156 (Version 1)
Quarter: 2024Q4

REPORT INFORMATION
  Report Type: Spontaneous
  Country: AR (occurrence: AR)
  Receive Date: 20241016
  Receipt Date: 20241016
  Transmission Date: 20250115
  Serious: Yes (Other)
  Sender: SANDOZ
  Company Number: AR-002147023-NVSC2021AR141003

PATIENT
  Age: 2 Year
  Sex: Male

DRUGS (3)
  1. OMNITROPE [Suspect]
     Active Substance: SOMATROPIN
     Dosage: 7.5 MG, QD
     Route: 058
     Dates: start: 20180110
  2. OMNITROPE [Suspect]
     Active Substance: SOMATROPIN
     Dosage: 10 MG
     Route: 065
     Dates: start: 20180110
  3. OMNITROPE [Suspect]
     Active Substance: SOMATROPIN
     Indication: Growth hormone deficiency
     Dosage: UNK
     Route: 065
     Dates: start: 20161201

REACTIONS (1)
  - Hypoglycaemia [Unknown]

NARRATIVE: CASE EVENT DATE: 20180101
